APPROVED DRUG PRODUCT: DESCOVY
Active Ingredient: EMTRICITABINE; TENOFOVIR ALAFENAMIDE FUMARATE
Strength: 200MG;EQ 25MG BASE
Dosage Form/Route: TABLET;ORAL
Application: N208215 | Product #001 | TE Code: AB
Applicant: GILEAD SCIENCES INC
Approved: Apr 4, 2016 | RLD: Yes | RS: Yes | Type: RX

PATENTS:
Patent 9296769 | Expires: Aug 15, 2032
Patent 8754065 | Expires: Aug 15, 2032
Patent 9296769 | Expires: Aug 15, 2032
Patent 9296769 | Expires: Aug 15, 2032
Patent 8754065 | Expires: Aug 15, 2032
Patent 8754065 | Expires: Aug 15, 2032
Patent 9296769*PED | Expires: Feb 15, 2033
Patent 8754065*PED | Expires: Feb 15, 2033

EXCLUSIVITY:
Code: M-316 | Date: Jun 20, 2028